FAERS Safety Report 5569080-4 (Version None)
Quarter: 2007Q4

REPORT INFORMATION
  Report Type: 
  Country: None (occurrence: None)
  Receive Date: 20071220
  Receipt Date: 20070629
  Transmission Date: 20080405
  Serious: No
  Sender: FDA-Public Use
  Company Number: A0661000A

PATIENT
  Age: 71 Year
  Sex: Male

DRUGS (14)
  1. AVODART [Suspect]
     Indication: DRUG USE FOR UNKNOWN INDICATION
     Dosage: .5MG PER DAY
     Route: 048
  2. PLAVIX [Concomitant]
  3. METOPROLOL SUCCINATE [Concomitant]
  4. LIPITOR [Concomitant]
  5. COENZYME Q10 [Concomitant]
  6. OCUVITE [Concomitant]
  7. FISH OIL [Concomitant]
  8. ASPIRIN [Concomitant]
  9. SAW PALMETTO [Concomitant]
  10. VITAMINS [Concomitant]
  11. MINERAL TAB [Concomitant]
  12. GLUCOSAMINE [Concomitant]
  13. METHYLSULFONYLMETHANE [Concomitant]
  14. CALCIUM [Concomitant]

REACTIONS (2)
  - BREAST ENLARGEMENT [None]
  - LOSS OF LIBIDO [None]
